FAERS Safety Report 6947471-4 (Version None)
Quarter: 2010Q3

REPORT INFORMATION
  Report Type: 
  Country: None (occurrence: None)
  Receive Date: 20100825
  Receipt Date: 20100810
  Transmission Date: 20110219
  Serious: Yes (Hospitalization, Other)
  Sender: FDA-Public Use
  Company Number: 2010AP001732

PATIENT
  Age: 80 Year
  Sex: Female

DRUGS (10)
  1. LEVETIRACETAM [Suspect]
     Dosage: 1000 MG; BID;
  2. AMIODARONE HYDROCHLORIDE [Suspect]
     Dosage: 400 MG; BID; PO, 200 MG; QD;
  3. PHENYTOIN [Concomitant]
  4. METOPROLOL TARTRATE [Concomitant]
  5. WARFARIN SODIUM [Concomitant]
  6. FUROSEMIDE [Concomitant]
  7. AMLODIPINE [Concomitant]
  8. TELMISARTAN [Concomitant]
  9. SERTRALINE HYDROCHLORIDE [Concomitant]
  10. LEVOTHYROXINE [Concomitant]

REACTIONS (10)
  - BLOOD THYROID STIMULATING HORMONE DECREASED [None]
  - CARDIAC FAILURE CONGESTIVE [None]
  - DELIRIUM [None]
  - DEPRESSED LEVEL OF CONSCIOUSNESS [None]
  - DISTURBANCE IN ATTENTION [None]
  - HYPERTHYROIDISM [None]
  - IDIOSYNCRATIC DRUG REACTION [None]
  - IMPAIRED SELF-CARE [None]
  - POVERTY OF THOUGHT CONTENT [None]
  - THYROXINE FREE INCREASED [None]
